FAERS Safety Report 24895402 (Version 2)
Quarter: 2025Q1

REPORT INFORMATION
  Report Type: Report from Study
  Country: JP (occurrence: JP)
  Receive Date: 20250128
  Receipt Date: 20250227
  Transmission Date: 20250408
  Serious: Yes (Hospitalization)
  Sender: ALNYLAM PHARMACEUTICALS
  Company Number: JP-ALNYLAM PHARMACEUTICALS, INC.-ALN-2025-000506

PATIENT

DRUGS (2)
  1. AMVUTTRA [Suspect]
     Active Substance: VUTRISIRAN
     Indication: Hereditary neuropathic amyloidosis
     Route: 058
     Dates: start: 20231226, end: 20240917
  2. VITAMINS [Concomitant]
     Active Substance: VITAMINS
     Indication: Vitamin supplementation
     Route: 048
     Dates: start: 20230928

REACTIONS (3)
  - Spinal compression fracture [Unknown]
  - Decreased appetite [Unknown]
  - Fall [Unknown]

NARRATIVE: CASE EVENT DATE: 20241201
